FAERS Safety Report 9434244 (Version 2)
Quarter: 2013Q3

REPORT INFORMATION
  Report Type: Report from Study
  Country: US (occurrence: US)
  Receive Date: 20130801
  Receipt Date: 20130904
  Transmission Date: 20140515
  Serious: Yes (Hospitalization)
  Sender: FDA-Public Use
  Company Number: PHHO2013US009802

PATIENT
  Age: 65 Year
  Sex: Male

DRUGS (10)
  1. EVEROLIMUS [Suspect]
     Indication: RENAL CELL CARCINOMA
     Dosage: 10 MG, UNK
     Route: 048
     Dates: start: 20130403, end: 20130619
  2. AXITINIB [Suspect]
     Dosage: UNK
     Dates: start: 20130621, end: 20130628
  3. MAGIC MOUTHWASH [Concomitant]
  4. ONDANSETRON [Concomitant]
  5. LEVOTHYROXINE [Concomitant]
  6. LEVOFLOXACIN [Concomitant]
  7. LISINOPRIL [Concomitant]
  8. ROSUVASTATIN [Concomitant]
  9. TAMSULOSIN [Concomitant]
  10. AMLODIPINE [Concomitant]

REACTIONS (5)
  - Leukocytosis [Unknown]
  - Renal failure acute [Recovered/Resolved]
  - Lip swelling [Unknown]
  - Anaemia [Recovering/Resolving]
  - Hyperkalaemia [Recovered/Resolved]
